FAERS Safety Report 9239324 (Version 1)
Quarter: 2013Q2

REPORT INFORMATION
  Report Type: Spontaneous
  Country: US (occurrence: US)
  Receive Date: 20130418
  Receipt Date: 20130418
  Transmission Date: 20140414
  Serious: No
  Sender: FDA-Public Use
  Company Number: US-SANOFI-AVENTIS-2012SA047822

PATIENT
  Age: 59 Year
  Sex: Male

DRUGS (3)
  1. LOVENOX [Suspect]
     Indication: DEEP VEIN THROMBOSIS
     Route: 058
     Dates: start: 20120624
  2. LOVENOX [Suspect]
     Indication: DEEP VEIN THROMBOSIS
     Route: 058
     Dates: start: 20120624
  3. WARFARIN [Concomitant]
     Dates: start: 201206

REACTIONS (4)
  - Joint swelling [Not Recovered/Not Resolved]
  - Incorrect storage of drug [Unknown]
  - Local swelling [Recovering/Resolving]
  - Arthralgia [Not Recovered/Not Resolved]
